FAERS Safety Report 15793598 (Version 1)
Quarter: 2019Q1

REPORT INFORMATION
  Report Type: Spontaneous
  Country: US (occurrence: US)
  Receive Date: 20190103
  Receipt Date: 20190103
  Transmission Date: 20190417
  Serious: No
  Sender: FDA-Public Use
  Company Number: None

PATIENT

DRUGS (2)
  1. BUPIVACAINE HCL [Suspect]
     Active Substance: BUPIVACAINE HYDROCHLORIDE
  2. PENICILLIN G SODIUM. [Suspect]
     Active Substance: PENICILLIN G SODIUM

REACTIONS (6)
  - Incorrect route of product administration [None]
  - Sinus tachycardia [None]
  - Maternal drugs affecting foetus [None]
  - Maternal exposure during pregnancy [None]
  - Product label confusion [None]
  - Apgar score low [None]
